FAERS Safety Report 4537533-3 (Version None)
Quarter: 2004Q4

REPORT INFORMATION
  Report Type: 
  Country: None (occurrence: None)
  Receive Date: 20041216
  Receipt Date: 20040408
  Transmission Date: 20050328
  Serious: Yes (Other)
  Sender: FDA-Public Use
  Company Number: HQWYE418412APR04

PATIENT
  Age: 30 Year
  Sex: Male
  Weight: 81.72 kg

DRUGS (2)
  1. EFFEXOR XR [Suspect]
     Dosage: ORAL
     Route: 048
     Dates: start: 20000101
  2. ALCOHOL (ETHANOL) [Suspect]
     Dosage: ORAL
     Route: 048
     Dates: start: 20000101

REACTIONS (3)
  - HEPATIC ENZYME INCREASED [None]
  - LIVER DISORDER [None]
  - PYREXIA [None]
